FAERS Safety Report 24052065 (Version 1)
Quarter: 2024Q3

REPORT INFORMATION
  Report Type: Spontaneous
  Country: MT (occurrence: MT)
  Receive Date: 20240704
  Receipt Date: 20240704
  Transmission Date: 20241017
  Serious: Yes (Hospitalization)
  Sender: PFIZER
  Company Number: None

PATIENT
  Age: 26 Year
  Sex: Male
  Weight: 90 kg

DRUGS (5)
  1. LEVETIRACETAM [Suspect]
     Active Substance: LEVETIRACETAM
     Indication: Epilepsy
     Dosage: 200 MG, 2X/DAY (FREQ:12 H;200 MG BD)
     Dates: start: 20240402
  2. RISPERDAL [Concomitant]
     Active Substance: RISPERIDONE
     Dosage: FREQ:2 WK;25MG EVERY 2 WEEKS
  3. EPILIM [Concomitant]
     Active Substance: VALPROATE SODIUM
     Dosage: FREQ:12 H;1500 MG BD
  4. CLOMIPRAMINE [Concomitant]
     Active Substance: CLOMIPRAMINE
     Dosage: 25 MILLIGRAM
  5. ZONISAMIDE [Concomitant]
     Active Substance: ZONISAMIDE
     Dosage: 100 MG MORNING AND 200MG EVENING

REACTIONS (2)
  - Epilepsy [Not Recovered/Not Resolved]
  - Off label use [Unknown]

NARRATIVE: CASE EVENT DATE: 20240402
